FAERS Safety Report 15564565 (Version 1)
Quarter: 2018Q4

REPORT INFORMATION
  Report Type: Spontaneous
  Country: US (occurrence: US)
  Receive Date: 20181024
  Receipt Date: 20181024
  Transmission Date: 20190205
  Serious: Yes (Hospitalization)
  Sender: FDA-Public Use
  Company Number: None

PATIENT
  Age: 84 Year
  Sex: Male
  Weight: 71.5 kg

DRUGS (1)
  1. NALOXEGOL OXALATE. [Suspect]
     Active Substance: NALOXEGOL OXALATE
     Dates: end: 20181008

REACTIONS (4)
  - Hepatic neoplasm [None]
  - Abdominal pain [None]
  - Neoplasm progression [None]
  - Hypercalcaemia of malignancy [None]

NARRATIVE: CASE EVENT DATE: 20181009
